FAERS Safety Report 5019800-2 (Version None)
Quarter: 2006Q2

REPORT INFORMATION
  Report Type: 
  Country: None (occurrence: None)
  Receive Date: 20060607
  Receipt Date: 20060530
  Transmission Date: 20061013
  Serious: Yes (Death)
  Sender: FDA-Public Use
  Company Number: GB-JNJFOC-20060402457

PATIENT
  Age: 23 Year
  Sex: Male

DRUGS (6)
  1. DURAGESIC-50 [Suspect]
     Dosage: THIS DOSE APPLIED AT 11 AM
     Route: 062
  2. DURAGESIC-50 [Suspect]
     Indication: HEADACHE
     Dosage: THIS DOSE APPLIED AT 9 AM
     Route: 062
  3. DURAGESIC-50 [Suspect]
     Indication: CROHN'S DISEASE
     Route: 062
  4. DURAGESIC-50 [Suspect]
     Indication: ANALGESIC EFFECT
     Route: 062
  5. TEMAZEPAM [Suspect]
     Indication: DRUG USE FOR UNKNOWN INDICATION
  6. PIRITON [Suspect]
     Indication: DRUG USE FOR UNKNOWN INDICATION

REACTIONS (11)
  - AMNESIA [None]
  - CHILLS [None]
  - DEATH [None]
  - DIZZINESS [None]
  - DRY MOUTH [None]
  - DYSARTHRIA [None]
  - DYSPNOEA [None]
  - HEADACHE [None]
  - PHOTOPHOBIA [None]
  - PRURITUS [None]
  - VISION BLURRED [None]
